FAERS Safety Report 4969344-9 (Version None)
Quarter: 2006Q2

REPORT INFORMATION
  Report Type: 
  Country: None (occurrence: None)
  Receive Date: 20060405
  Receipt Date: 20060328
  Transmission Date: 20061013
  Serious: Yes (Other)
  Sender: FDA-Public Use
  Company Number: 2006043690

PATIENT
  Age: 60 Year
  Sex: Female
  Weight: 56.246 kg

DRUGS (4)
  1. NORVASC [Suspect]
     Indication: HYPERTENSION
     Dosage: 5 MG (5 MG, 1 IN 1 D), ORAL
     Route: 048
  2. BENADRYL [Suspect]
     Indication: ILL-DEFINED DISORDER
  3. XANAX [Concomitant]
  4. PROTONIX [Concomitant]

REACTIONS (3)
  - ANAPHYLACTIC REACTION [None]
  - FOOD ALLERGY [None]
  - MIGRAINE [None]
